FAERS Safety Report 13451202 (Version 2)
Quarter: 2017Q2

REPORT INFORMATION
  Report Type: Spontaneous
  Country: BR (occurrence: US)
  Receive Date: 20170418
  Receipt Date: 20170419
  Transmission Date: 20170830
  Serious: Yes (Other)
  Sender: FDA-Public Use
  Company Number: BR-VERICEL CORPORATION-VCEL-2017-000551

PATIENT

DRUGS (1)
  1. CARTICEL [Suspect]
     Active Substance: AUTOLOGOUS CULTURED CHONDROCYTES
     Indication: CARTILAGE INJURY

REACTIONS (1)
  - Exostosis [Unknown]
